FAERS Safety Report 22082633 (Version 1)
Quarter: 2023Q1

REPORT INFORMATION
  Report Type: Report from Study
  Country: ES (occurrence: ES)
  Receive Date: 20230310
  Receipt Date: 20230310
  Transmission Date: 20230418
  Serious: Yes (Other)
  Sender: FDA-Public Use
  Company Number: ES-JNJFOC-20230308064

PATIENT

DRUGS (1)
  1. IMBRUVICA [Suspect]
     Active Substance: IBRUTINIB
     Indication: Chronic lymphocytic leukaemia
     Route: 048

REACTIONS (6)
  - Haematotoxicity [Unknown]
  - Skin toxicity [Unknown]
  - Haemorrhage [Unknown]
  - Gastrointestinal toxicity [Unknown]
  - Respiratory tract infection [Unknown]
  - Muscle spasms [Unknown]
